FAERS Safety Report 12723285 (Version 3)
Quarter: 2016Q3

REPORT INFORMATION
  Report Type: Spontaneous
  Country: IT (occurrence: IT)
  Receive Date: 20160908
  Receipt Date: 20160926
  Transmission Date: 20161109
  Serious: Yes (Other)
  Sender: FDA-Public Use
  Company Number: IT-ROCHE-1827154

PATIENT
  Age: 95 Year
  Sex: Male

DRUGS (8)
  1. VISMODEGIB [Suspect]
     Active Substance: VISMODEGIB
     Indication: BASAL CELL CARCINOMA
     Dosage: 150 MG 1 TIME EVERY 2 DAYS FOR 10 DAYS
     Route: 048
     Dates: start: 20160301
  2. CONGESCOR [Concomitant]
     Active Substance: BISOPROLOL
  3. LASIX [Concomitant]
     Active Substance: FUROSEMIDE
  4. ASCRIPTIN [Concomitant]
     Active Substance: ASPIRIN
  5. URSOBIL [Concomitant]
  6. ALLOPURINOL. [Concomitant]
     Active Substance: ALLOPURINOL
  7. NITROGLICERINA [Concomitant]
     Active Substance: NITROGLYCERIN
  8. VISMODEGIB [Suspect]
     Active Substance: VISMODEGIB
     Route: 065

REACTIONS (3)
  - Asthenia [Recovered/Resolved]
  - Dysgeusia [Not Recovered/Not Resolved]
  - Muscle spasms [Recovered/Resolved]

NARRATIVE: CASE EVENT DATE: 201603
